FAERS Safety Report 10496229 (Version 2)
Quarter: 2014Q4

REPORT INFORMATION
  Report Type: Spontaneous
  Country: JP (occurrence: JP)
  Receive Date: 20141003
  Receipt Date: 20141024
  Transmission Date: 20150528
  Serious: Yes (Death, Hospitalization, Other)
  Sender: FDA-Public Use
  Company Number: JP-BAUSCH-BL-2014-005952

PATIENT
  Age: 69 Year
  Sex: Male

DRUGS (5)
  1. FLUOROURACIL. [Suspect]
     Active Substance: FLUOROURACIL
     Indication: OESOPHAGEAL SQUAMOUS CELL CARCINOMA
     Dates: start: 201002
  2. DOCETAXEL. [Concomitant]
     Active Substance: DOCETAXEL
     Indication: METASTASES TO LIVER
  3. NEDAPLATIN [Suspect]
     Active Substance: NEDAPLATIN
     Indication: OESOPHAGEAL SQUAMOUS CELL CARCINOMA
     Dates: start: 201002
  4. FLUOROURACIL. [Suspect]
     Active Substance: FLUOROURACIL
  5. NEDAPLATIN [Suspect]
     Active Substance: NEDAPLATIN

REACTIONS (3)
  - Malignant pleural effusion [Fatal]
  - Agranulocytosis [Unknown]
  - Oesophageal adenocarcinoma [Unknown]

NARRATIVE: CASE EVENT DATE: 2011
